FAERS Safety Report 5846504-6 (Version None)
Quarter: 2008Q3

REPORT INFORMATION
  Report Type: 
  Country: None (occurrence: None)
  Receive Date: 20080815
  Receipt Date: 20080808
  Transmission Date: 20090109
  Serious: Yes (Hospitalization)
  Sender: FDA-Public Use
  Company Number: CA-BAYER-200713000GDS

PATIENT
  Age: 70 Year
  Sex: Male
  Weight: 62 kg

DRUGS (17)
  1. SORAFENIB [Suspect]
     Indication: RENAL CELL CARCINOMA
     Dosage: TOTAL DAILY DOSE: 400 MG
     Route: 048
     Dates: start: 20070601
  2. SORAFENIB [Suspect]
     Dosage: TOTAL DAILY DOSE: 400 MG
     Route: 048
     Dates: start: 20060621, end: 20070522
  3. LEVOTHYROXINE SODIUM [Concomitant]
     Indication: HYPOTHYROIDISM
     Route: 048
     Dates: start: 20061222
  4. NORVASC [Concomitant]
     Indication: HYPERTENSION
     Route: 048
     Dates: start: 20060818
  5. HYDROMORPHONE HCL [Concomitant]
     Indication: PAIN
     Route: 048
     Dates: start: 20070511
  6. HYDROMORPHONE HCL [Concomitant]
     Indication: PAIN
     Dosage: TOTAL DAILY DOSE: 12 MG
     Route: 048
     Dates: start: 20070511
  7. DOMPERIDONE [Concomitant]
     Indication: ANTIEMETIC SUPPORTIVE CARE
     Route: 048
     Dates: start: 20070522
  8. OMEPRAZOLE [Concomitant]
     Indication: DYSPEPSIA
     Route: 048
     Dates: start: 20070522
  9. AMLODIPINE [Concomitant]
     Indication: HYPERTENSION
     Route: 048
     Dates: start: 20070522
  10. MEGACE [Concomitant]
     Indication: DECREASED APPETITE
     Route: 048
     Dates: start: 20070522, end: 20070525
  11. ATIVAN [Concomitant]
     Indication: ANXIETY
     Route: 048
     Dates: start: 20070522, end: 20070601
  12. TYLENOL [Concomitant]
     Indication: PYREXIA
     Route: 048
     Dates: start: 20070522, end: 20070601
  13. GRAVOL TAB [Concomitant]
     Indication: NAUSEA
     Route: 042
     Dates: start: 20070522, end: 20070601
  14. GRAVOL TAB [Concomitant]
     Route: 048
     Dates: start: 20070522, end: 20070601
  15. COLACE [Concomitant]
     Indication: CONSTIPATION PROPHYLAXIS
     Route: 048
     Dates: start: 20070522, end: 20070528
  16. SENOKOT [Concomitant]
     Indication: CONSTIPATION PROPHYLAXIS
     Route: 048
     Dates: start: 20070522, end: 20070601
  17. LACTULOSE [Concomitant]
     Indication: CONSTIPATION PROPHYLAXIS
     Route: 048
     Dates: start: 20070523, end: 20070601

REACTIONS (3)
  - ABDOMINAL PAIN UPPER [None]
  - HYPERCREATININAEMIA [None]
  - RENAL FAILURE ACUTE [None]
